FAERS Safety Report 5329302-1 (Version None)
Quarter: 2007Q2

REPORT INFORMATION
  Report Type: 
  Country: None (occurrence: None)
  Receive Date: 20070518
  Receipt Date: 20070509
  Transmission Date: 20071010
  Serious: Yes (Hospitalization)
  Sender: FDA-Public Use
  Company Number: SE-PFIZER INC-2007038009

PATIENT
  Age: 58 Year
  Sex: Female

DRUGS (5)
  1. SERTRALINE [Suspect]
     Dosage: DAILY DOSE:25MG
  2. DALTEPARIN SODIUM [Interacting]
     Dosage: DAILY DOSE:2500I.U.
  3. PARACETAMOL [Interacting]
     Dosage: DAILY DOSE:4GRAM
  4. CITALOPRAM HYDROBROMIDE [Interacting]
  5. WARFARIN [Interacting]
     Indication: DEEP VEIN THROMBOSIS

REACTIONS (2)
  - CEREBRAL HAEMORRHAGE [None]
  - DRUG INTERACTION [None]
